FAERS Safety Report 8554122-4 (Version None)
Quarter: 2012Q3

REPORT INFORMATION
  Report Type: 
  Country: None (occurrence: None)
  Receive Date: 20120731
  Receipt Date: 20120726
  Transmission Date: 20120928
  Serious: Yes (Other)
  Sender: FDA-Public Use
  Company Number: PHHY2012MX065256

PATIENT
  Sex: Female

DRUGS (2)
  1. ZOLEDRONOC ACID [Suspect]
     Indication: OSTEOPOROSIS
     Dosage: 5 MG/100 ML, PER YEAR
     Route: 042
     Dates: start: 20110224
  2. ZOLEDRONOC ACID [Suspect]
     Dosage: 5 MG/100 ML, PER YEAR
     Route: 042
     Dates: start: 20120726

REACTIONS (1)
  - HERNIA [None]
